FAERS Safety Report 7506667-3 (Version None)
Quarter: 2011Q2

REPORT INFORMATION
  Report Type: 
  Country: None (occurrence: None)
  Receive Date: 20110526
  Receipt Date: 20110516
  Transmission Date: 20111010
  Serious: Yes (Hospitalization)
  Sender: FDA-Public Use
  Company Number: CH-ELI_LILLY_AND_COMPANY-CH201105005254

PATIENT
  Age: 33 Year
  Sex: Female

DRUGS (5)
  1. HALDOL [Concomitant]
     Dosage: 3 MG, QD
     Route: 048
     Dates: start: 20100323, end: 20100324
  2. ZYPREXA [Suspect]
     Dosage: 10 MG, QD
     Route: 048
     Dates: start: 20100329, end: 20100406
  3. ZYPREXA [Suspect]
     Dosage: 5 MG, QD
     Route: 048
     Dates: start: 20100407
  4. FOLVITE [Concomitant]
     Dosage: 2 MG, QD
     Route: 048
     Dates: start: 20100323
  5. ZYPREXA [Suspect]
     Dosage: 2.5 MG, QD
     Route: 048
     Dates: start: 20100327, end: 20100328

REACTIONS (2)
  - DRUG EXPOSURE DURING PREGNANCY [None]
  - FAECALOMA [None]
